FAERS Safety Report 9946095 (Version 1)
Quarter: 2014Q1

REPORT INFORMATION
  Report Type: Spontaneous
  Country: US (occurrence: US)
  Receive Date: 20140303
  Receipt Date: 20140303
  Transmission Date: 20141002
  Serious: No
  Sender: FDA-Public Use
  Company Number: US-AMGEN-USASP2013084437

PATIENT
  Age: 37 Year
  Sex: Male

DRUGS (1)
  1. ENBREL [Suspect]
     Indication: ILL-DEFINED DISORDER
     Dosage: 25 MG, 2 TIMES/WK
     Route: 058
     Dates: start: 2007

REACTIONS (1)
  - Pain [Unknown]
